FAERS Safety Report 16966082 (Version 9)
Quarter: 2021Q4

REPORT INFORMATION
  Report Type: Spontaneous
  Country: US (occurrence: US)
  Receive Date: 20191028
  Receipt Date: 20211223
  Transmission Date: 20220303
  Serious: Yes (Other)
  Sender: FDA-Public Use
  Company Number: US-PFIZER INC-2019462849

PATIENT
  Age: 73 Year
  Sex: Female

DRUGS (8)
  1. TOVIAZ [Suspect]
     Active Substance: FESOTERODINE FUMARATE
     Indication: Urinary incontinence
     Dosage: 4 MG, 1X/DAY (EVERY NIGHT)
     Route: 048
  2. TOVIAZ [Suspect]
     Active Substance: FESOTERODINE FUMARATE
     Dosage: 8 MG, 1X/DAY (EVERY NIGHT) (STRENGTH: 8 MG)
     Route: 048
  3. TOVIAZ [Suspect]
     Active Substance: FESOTERODINE FUMARATE
     Dosage: 4 MG
  4. LEVOTHYROXINE [Concomitant]
     Active Substance: LEVOTHYROXINE
     Indication: Thyroid disorder
  5. METFORMIN [Concomitant]
     Active Substance: METFORMIN HYDROCHLORIDE
     Indication: Hypoglycaemia
     Dosage: 2 DF, 2X/DAY (IN THE MORNING AND AT NIGHT 500 MG)
  6. MEMANTINE [Concomitant]
     Active Substance: MEMANTINE
     Indication: Memory impairment
     Dosage: 10 MG, 1X/DAY (ONCE AT NIGHT)
  7. FINASTERIDE [Concomitant]
     Active Substance: FINASTERIDE
     Dosage: 5 MG
  8. PANTOPRAZOLE SODIUM [Concomitant]
     Active Substance: PANTOPRAZOLE SODIUM
     Dosage: 40 MG

REACTIONS (11)
  - Drug dependence [Unknown]
  - Drug ineffective [Unknown]
  - Enuresis [Unknown]
  - Middle insomnia [Unknown]
  - Dry mouth [Recovering/Resolving]
  - Dry throat [Recovering/Resolving]
  - Vulvovaginal dryness [Recovering/Resolving]
  - Lip dry [Recovering/Resolving]
  - Body height decreased [Unknown]
  - Illness [Unknown]
  - Insomnia [Unknown]
